FAERS Safety Report 8624275-8 (Version None)
Quarter: 2012Q3

REPORT INFORMATION
  Report Type: 
  Country: None (occurrence: None)
  Receive Date: 20120827
  Receipt Date: 20120822
  Transmission Date: 20120928
  Serious: Yes (Hospitalization, Other)
  Sender: FDA-Public Use
  Company Number: EG-AMGEN-EGYSP2012049625

PATIENT
  Age: 49 Year
  Sex: Male
  Weight: 74 kg

DRUGS (6)
  1. KANAKION [Concomitant]
     Dosage: UNK
  2. NPLATE [Suspect]
     Dosage: 2 MUG/KG, QWK
  3. NPLATE [Suspect]
     Dosage: 7 MUG/KG, QWK
  4. NPLATE [Suspect]
     Indication: IDIOPATHIC THROMBOCYTOPENIC PURPURA
     Dosage: 1 MUG/KG, QWK
  5. FOLIC ACID [Concomitant]
     Dosage: UNK
  6. SELENIUM ACE [Concomitant]
     Dosage: UNK

REACTIONS (6)
  - THERAPEUTIC RESPONSE DECREASED [None]
  - PREOPERATIVE CARE [None]
  - BRONCHITIS [None]
  - POST PROCEDURAL COMPLICATION [None]
  - SURGERY [None]
  - NOSOCOMIAL INFECTION [None]
